FAERS Safety Report 21447157 (Version 1)
Quarter: 2022Q4

REPORT INFORMATION
  Report Type: Spontaneous
  Country: RU (occurrence: RU)
  Receive Date: 20221012
  Receipt Date: 20221012
  Transmission Date: 20230113
  Serious: Yes (Other)
  Sender: FDA-Public Use
  Company Number: RU-FreseniusKabi-FK202213838

PATIENT
  Age: 56 Year
  Sex: Female

DRUGS (6)
  1. IRINOTECAN [Suspect]
     Active Substance: IRINOTECAN
     Indication: Ductal adenocarcinoma of pancreas
     Dosage: 10 CYCLES
     Dates: start: 201805
  2. OXALIPLATIN [Suspect]
     Active Substance: OXALIPLATIN
     Indication: Ductal adenocarcinoma of pancreas
     Dosage: 10 CYCLES
     Dates: start: 201805
  3. FLUOROURACIL [Suspect]
     Active Substance: FLUOROURACIL
     Indication: Ductal adenocarcinoma of pancreas
     Dosage: 10 CYCLES
     Dates: start: 201805
  4. LEUCOVORIN [Suspect]
     Active Substance: LEUCOVORIN
     Indication: Ductal adenocarcinoma of pancreas
     Dosage: 10 CYCLES
     Dates: start: 201805
  5. GEMCITABINE [Concomitant]
     Active Substance: GEMCITABINE
     Indication: Ductal adenocarcinoma of pancreas
     Dosage: SECOND-LINE CHEMOTHERAPY?2 CYCLES
     Dates: start: 201812
  6. TALAZOPARIB [Concomitant]
     Active Substance: TALAZOPARIB
     Indication: Ductal adenocarcinoma of pancreas
     Dosage: PARP INHIBITOR?ONCE DAILY
     Dates: start: 201903

REACTIONS (2)
  - Neuropathy peripheral [Unknown]
  - Febrile neutropenia [Unknown]
